FAERS Safety Report 9756261 (Version 1)
Quarter: 2013Q4

REPORT INFORMATION
  Report Type: Spontaneous
  Country: US (occurrence: US)
  Receive Date: 20131213
  Receipt Date: 20131213
  Transmission Date: 20140711
  Serious: No
  Sender: FDA-Public Use
  Company Number: US-GLAXOSMITHKLINE-A1036766A

PATIENT
  Sex: Female

DRUGS (3)
  1. NICODERM CQ CLEAR 21MG [Suspect]
     Indication: SMOKING CESSATION THERAPY
     Route: 062
     Dates: start: 201305
  2. NICOTINE PATCH UNKNOWN BRAND [Suspect]
     Indication: SMOKING CESSATION THERAPY
     Route: 062
     Dates: start: 201305
  3. NICODERM CQ CLEAR 14MG [Suspect]
     Indication: SMOKING CESSATION THERAPY
     Route: 062
     Dates: start: 20130723

REACTIONS (5)
  - Application site erythema [Recovered/Resolved]
  - Application site reaction [Unknown]
  - Application site pruritus [Unknown]
  - Application site pain [Unknown]
  - Rash macular [Unknown]
